FAERS Safety Report 5702673-X (Version None)
Quarter: 2008Q2

REPORT INFORMATION
  Report Type: 
  Country: None (occurrence: None)
  Receive Date: 20080410
  Receipt Date: 20080410
  Transmission Date: 20081010
  Serious: Yes (Disabling)
  Sender: FDA-Public Use
  Company Number: None

PATIENT
  Age: 55 Year
  Sex: Female
  Weight: 68.0396 kg

DRUGS (2)
  1. PROPOFOL [Suspect]
     Indication: ANXIETY
     Dosage: 200 MG 1 DOSE IV
     Route: 042
     Dates: start: 20080318, end: 20080318
  2. PROPOFOL [Suspect]
     Indication: PAIN
     Dosage: 200 MG 1 DOSE IV
     Route: 042
     Dates: start: 20080318, end: 20080318

REACTIONS (4)
  - CHILLS [None]
  - OXYGEN SATURATION DECREASED [None]
  - PRODUCTIVE COUGH [None]
  - PYREXIA [None]
